FAERS Safety Report 25890162 (Version 1)
Quarter: 2025Q4

REPORT INFORMATION
  Report Type: Spontaneous
  Country: IN (occurrence: IN)
  Receive Date: 20251007
  Receipt Date: 20251007
  Transmission Date: 20260118
  Serious: Yes (Hospitalization)
  Sender: ACCORD
  Company Number: IN-MLMSERVICE-20250916-PI647880-00270-1

PATIENT
  Age: 45 Year
  Sex: Female

DRUGS (5)
  1. HYDROXYCHLOROQUINE [Suspect]
     Active Substance: HYDROXYCHLOROQUINE
     Indication: Autoimmune haemolytic anaemia
     Dosage: TAPERED TO THE CURRENT DOSE OF 5 MG ONCE DAILY ORAL
     Route: 048
  2. PREDNISOLONE [Suspect]
     Active Substance: PREDNISOLONE
     Indication: Autoimmune haemolytic anaemia
     Dosage: INITIALLY
     Route: 042
  3. PREDNISOLONE [Suspect]
     Active Substance: PREDNISOLONE
     Indication: Autoimmune haemolytic anaemia
     Dosage: TAPERED TO THE CURRENT DOSE OF 5 MG ONCE DAILY ORAL
     Route: 048
  4. HYDROXYCHLOROQUINE [Suspect]
     Active Substance: HYDROXYCHLOROQUINE
     Indication: Antinuclear antibody positive
  5. PREDNISOLONE [Suspect]
     Active Substance: PREDNISOLONE
     Indication: Antinuclear antibody positive
     Dosage: INITIALLY
     Route: 042

REACTIONS (1)
  - Iatrogenic Kaposi sarcoma [Recovering/Resolving]
